FAERS Safety Report 24875003 (Version 1)
Quarter: 2025Q1

REPORT INFORMATION
  Report Type: Other
  Country: US (occurrence: US)
  Receive Date: 20250122
  Receipt Date: 20250122
  Transmission Date: 20250409
  Serious: Yes (Other)
  Sender: LEPU PHARMACEUTICAL TECHNOLOGY CO., LTD.
  Company Number: US-Lepu Pharmaceutical Technology Co., Ltd.-2169539

PATIENT
  Age: 85 Year
  Sex: Female

DRUGS (1)
  1. ATORVASTATIN CALCIUM [Suspect]
     Active Substance: ATORVASTATIN CALCIUM
     Indication: Cerebrovascular accident

REACTIONS (1)
  - Autoimmune hepatitis [Recovered/Resolved]
